FAERS Safety Report 23638251 (Version 1)
Quarter: 2024Q1

REPORT INFORMATION
  Report Type: Spontaneous
  Country: ZA (occurrence: None)
  Receive Date: 20240315
  Receipt Date: 20240315
  Transmission Date: 20240410
  Serious: Yes (Hospitalization, Other)
  Sender: FDA-Public Use
  Company Number: 2024A061083

PATIENT
  Age: 21915 Day
  Sex: Female

DRUGS (4)
  1. BUDESONIDE\FORMOTEROL [Suspect]
     Active Substance: BUDESONIDE\FORMOTEROL
     Indication: Asthma
     Dosage: 120 DOSE 160/4.5 MCG, UNKNOWN160.0UG UNKNOWN
     Route: 055
  2. ESTRADIOL [Concomitant]
     Active Substance: ESTRADIOL
     Dosage: 25.0UG UNKNOWN
     Route: 061
  3. FLUOXETINE [Concomitant]
     Active Substance: FLUOXETINE HYDROCHLORIDE
     Dosage: 20.0MG UNKNOWN
  4. PHENTERMINE [Concomitant]
     Active Substance: PHENTERMINE
     Dosage: 30.0MG UNKNOWN

REACTIONS (1)
  - Colon cancer [Unknown]
